FAERS Safety Report 4832444-8 (Version None)
Quarter: 2005Q4

REPORT INFORMATION
  Report Type: 
  Country: None (occurrence: None)
  Receive Date: 20051121
  Receipt Date: 20050802
  Transmission Date: 20060501
  Serious: Yes (Other)
  Sender: FDA-Public Use
  Company Number: ES-NOVOPROD-246028

PATIENT

DRUGS (1)
  1. INSULATARD INNOLET [Suspect]
     Indication: DIABETES MELLITUS
     Dates: start: 20041101

REACTIONS (5)
  - BLISTER [None]
  - HYPERGLYCAEMIA [None]
  - INJECTION SITE REACTION [None]
  - PRURITUS [None]
  - RASH MACULAR [None]
